FAERS Safety Report 6518679-7 (Version None)
Quarter: 2009Q4

REPORT INFORMATION
  Report Type: 
  Country: None (occurrence: None)
  Receive Date: 20091228
  Receipt Date: 20091217
  Transmission Date: 20100525
  Serious: Yes (Other)
  Sender: FDA-Public Use
  Company Number: FR-ROCHE-675569

PATIENT
  Age: 76 Year
  Sex: Female

DRUGS (4)
  1. PEGASYS [Suspect]
     Route: 065
  2. PLAVIX [Concomitant]
  3. COAPROVEL [Concomitant]
  4. MIANSERINE [Concomitant]

REACTIONS (3)
  - SICCA SYNDROME [None]
  - ULCERATIVE KERATITIS [None]
  - VISUAL ACUITY REDUCED [None]
